FAERS Safety Report 21568708 (Version 1)
Quarter: 2022Q4

REPORT INFORMATION
  Report Type: Spontaneous
  Country: US (occurrence: None)
  Receive Date: 20221107
  Receipt Date: 20221107
  Transmission Date: 20230113
  Serious: No
  Sender: FDA-Public Use
  Company Number: None

PATIENT
  Age: 62 Year
  Sex: Male

DRUGS (1)
  1. LUMATEPERONE [Suspect]
     Active Substance: LUMATEPERONE
     Dosage: FREQUENCY : DAILY;?
     Route: 048
     Dates: start: 20221020, end: 20221031

REACTIONS (2)
  - Nausea [None]
  - Vomiting [None]

NARRATIVE: CASE EVENT DATE: 20221031
